FAERS Safety Report 6012018-6 (Version None)
Quarter: 2008Q4

REPORT INFORMATION
  Report Type: 
  Country: None (occurrence: None)
  Receive Date: 20081218
  Receipt Date: 20081124
  Transmission Date: 20090506
  Serious: No
  Sender: FDA-Public Use
  Company Number: US-ASTRAZENECA-2008UW24041

PATIENT
  Age: 65 Year
  Sex: Female

DRUGS (4)
  1. CRESTOR [Suspect]
     Indication: BLOOD CHOLESTEROL INCREASED
     Route: 048
     Dates: start: 20080919
  2. CRESTOR [Suspect]
     Route: 048
     Dates: end: 20081028
  3. TYLENOL (CAPLET) [Concomitant]
     Indication: ARTHRITIS
  4. LEVOTHYROXINE SODIUM [Concomitant]

REACTIONS (4)
  - APHONIA [None]
  - DRUG EFFECT DECREASED [None]
  - GASTROOESOPHAGEAL REFLUX DISEASE [None]
  - LARYNGITIS [None]
